FAERS Safety Report 5557326-8 (Version None)
Quarter: 2007Q4

REPORT INFORMATION
  Report Type: 
  Country: None (occurrence: None)
  Receive Date: 20071214
  Receipt Date: 20071210
  Transmission Date: 20080405
  Serious: Yes (Death, Hospitalization)
  Sender: FDA-Public Use
  Company Number: US-AVENTIS-200721018GDDC

PATIENT
  Age: 63 Year
  Sex: Female
  Weight: 88.9 kg

DRUGS (12)
  1. DOCETAXEL [Suspect]
     Indication: BREAST CANCER
     Route: 042
     Dates: start: 20071120, end: 20071120
  2. DOXORUBICIN HCL [Suspect]
     Indication: BREAST CANCER
     Route: 042
     Dates: start: 20071120, end: 20071120
  3. CYTOXAN [Suspect]
     Indication: BREAST CANCER
     Route: 042
     Dates: start: 20071120, end: 20071120
  4. NEULASTA [Suspect]
     Route: 058
     Dates: end: 20071121
  5. ATIVAN [Concomitant]
  6. COMPAZINE [Concomitant]
  7. DEXAMETHASONE TAB [Concomitant]
  8. ZOFRAN [Concomitant]
  9. METOPROLOL [Concomitant]
  10. ASPIRIN [Concomitant]
  11. CALCIUM [Concomitant]
  12. CENTRUM                            /00554501/ [Concomitant]

REACTIONS (4)
  - ABDOMINAL PAIN [None]
  - COLITIS ISCHAEMIC [None]
  - INTESTINAL PERFORATION [None]
  - SEPTIC SHOCK [None]
